FAERS Safety Report 7607104-0 (Version None)
Quarter: 2011Q3

REPORT INFORMATION
  Report Type: 
  Country: None (occurrence: None)
  Receive Date: 20110713
  Receipt Date: 20110705
  Transmission Date: 20111222
  Serious: Yes (Other)
  Sender: FDA-Public Use
  Company Number: CN-JNJFOC-20110703693

PATIENT
  Age: 4 Decade
  Sex: Female

DRUGS (3)
  1. VALPROATE SODIUM [Suspect]
     Indication: SCHIZOPHRENIA
     Route: 048
  2. CLONAZEPAM [Suspect]
     Indication: SCHIZOPHRENIA
     Route: 048
  3. RISPERDAL CONSTA [Suspect]
     Indication: SCHIZOPHRENIA
     Route: 030
     Dates: start: 20110623

REACTIONS (2)
  - NEPHRITIS [None]
  - GENERALISED OEDEMA [None]
